FAERS Safety Report 20751476 (Version 1)
Quarter: 2022Q2

REPORT INFORMATION
  Report Type: Spontaneous
  Country: US (occurrence: None)
  Receive Date: 20220426
  Receipt Date: 20220426
  Transmission Date: 20220721
  Serious: Yes (Hospitalization)
  Sender: FDA-Public Use
  Company Number: None

PATIENT

DRUGS (2)
  1. CLONIDINE [Suspect]
     Active Substance: CLONIDINE
     Route: 048
  2. CLONIDINE [Suspect]
     Active Substance: CLONIDINE
     Route: 048

REACTIONS (2)
  - Product dispensing error [None]
  - Incorrect dose administered [None]
